FAERS Safety Report 4904272-6 (Version None)
Quarter: 2006Q1

REPORT INFORMATION
  Report Type: 
  Country: None (occurrence: None)
  Receive Date: 20060208
  Receipt Date: 20050819
  Transmission Date: 20060701
  Serious: No
  Sender: FDA-Public Use
  Company Number: US-GLAXOSMITHKLINE-A0570933A

PATIENT
  Age: 49 Year
  Sex: Female

DRUGS (6)
  1. PAXIL [Suspect]
     Indication: DEPRESSION
     Dosage: 20MG TWICE PER DAY
     Route: 048
  2. PAXIL [Suspect]
     Dosage: 12.5MG PER DAY
     Route: 048
     Dates: start: 20050713
  3. BUSPAR [Concomitant]
  4. ASTELIN [Concomitant]
  5. LIPITOR [Concomitant]
  6. ZETIA [Concomitant]

REACTIONS (3)
  - ANXIETY [None]
  - BRUXISM [None]
  - TINNITUS [None]
